FAERS Safety Report 5033241-3 (Version None)
Quarter: 2006Q2

REPORT INFORMATION
  Report Type: 
  Country: None (occurrence: None)
  Receive Date: 20060620
  Receipt Date: 20060609
  Transmission Date: 20061013
  Serious: Yes (Life-Threatening)
  Sender: FDA-Public Use
  Company Number: 29356

PATIENT
  Age: 70 Year
  Sex: Male

DRUGS (4)
  1. TAMBOCOR [Suspect]
     Indication: ATRIAL FIBRILLATION
     Dosage: ORAL
     Route: 048
     Dates: start: 20060130
  2. BEPRICOR [Suspect]
     Indication: ATRIAL FIBRILLATION
     Dosage: ORAL
     Route: 048
     Dates: start: 20060209
  3. ARTIST [Suspect]
     Indication: ATRIAL FIBRILLATION
     Dates: start: 20060130, end: 20060322
  4. MAINTATE [Concomitant]

REACTIONS (3)
  - CARDIAC FAILURE [None]
  - HAEMOPTYSIS [None]
  - INTERSTITIAL LUNG DISEASE [None]
